FAERS Safety Report 8011457-1 (Version None)
Quarter: 2011Q4

REPORT INFORMATION
  Report Type: 
  Country: None (occurrence: None)
  Receive Date: 20111228
  Receipt Date: 20111215
  Transmission Date: 20120403
  Serious: Yes (Hospitalization, Other)
  Sender: FDA-Public Use
  Company Number: US-WATSON-2011-21797

PATIENT
  Sex: Female
  Weight: 65.306 kg

DRUGS (5)
  1. TEGRETOL [Concomitant]
     Indication: CONVULSION
     Dosage: 300 MG TID
     Route: 048
     Dates: start: 20060101
  2. FOLIC ACID [Concomitant]
     Indication: PRODUCT USED FOR UNKNOWN INDICATION
     Dosage: ONCE A DAY
     Route: 048
  3. LEVETIRACETAM [Suspect]
     Indication: CONVULSION
     Dosage: 2750 MG A DAY
     Route: 048
     Dates: start: 20060101
  4. VIMPAT [Suspect]
     Indication: CONVULSION
     Dosage: 150 MG BID
     Route: 048
     Dates: start: 20111209
  5. CENTRUM                            /00554501/ [Concomitant]
     Indication: PRODUCT USED FOR UNKNOWN INDICATION
     Dosage: UNK
     Route: 048

REACTIONS (7)
  - HEAD INJURY [None]
  - HOSPITALISATION [None]
  - FALL [None]
  - CONFUSIONAL STATE [None]
  - HALLUCINATION [None]
  - CONTUSION [None]
  - CONVULSION [None]
